FAERS Safety Report 9364238 (Version 1)
Quarter: 2013Q2

REPORT INFORMATION
  Report Type: Spontaneous
  Country: US (occurrence: None)
  Receive Date: 20130619
  Receipt Date: 20130619
  Transmission Date: 20140414
  Serious: Yes (Other)
  Sender: FDA-Public Use
  Company Number: SYM-2013-04900

PATIENT
  Age: 16 Year
  Sex: Female

DRUGS (1)
  1. XENAZINE [Suspect]
     Indication: PRODUCT USED FOR UNKNOWN INDICATION
     Dosage: 12.5 MG, 2 IN 1 D, ORAL
     Route: 048
     Dates: start: 201208

REACTIONS (2)
  - Depression [None]
  - Intentional self-injury [None]
